FAERS Safety Report 8348155-0 (Version None)
Quarter: 2012Q2

REPORT INFORMATION
  Report Type: 
  Country: None (occurrence: None)
  Receive Date: 20120509
  Receipt Date: 20100709
  Transmission Date: 20120825
  Serious: No
  Sender: FDA-Public Use
  Company Number: US-TEVA-2010003735

PATIENT
  Sex: Female
  Weight: 63.56 kg

DRUGS (5)
  1. CELEXA [Concomitant]
     Indication: FIBROMYALGIA
     Dates: start: 20010101
  2. NUVIGIL [Suspect]
     Indication: SLEEP APNOEA SYNDROME
     Dosage: 150 MILLIGRAM;
     Route: 048
     Dates: start: 20091101, end: 20100701
  3. ESTRADIOL [Concomitant]
     Dates: start: 20050101
  4. NUVIGIL [Suspect]
     Dosage: 250 MILLIGRAM;
     Route: 048
     Dates: start: 20100701
  5. METHADONE HCL [Concomitant]
     Indication: FIBROMYALGIA
     Dates: start: 20010101

REACTIONS (1)
  - DRUG INEFFECTIVE [None]
